FAERS Safety Report 7415114-1 (Version None)
Quarter: 2011Q2

REPORT INFORMATION
  Report Type: 
  Country: None (occurrence: None)
  Receive Date: 20110414
  Receipt Date: 20110401
  Transmission Date: 20111010
  Serious: Yes (Hospitalization, Other)
  Sender: FDA-Public Use
  Company Number: PHHY2009JP48659

PATIENT
  Sex: Female
  Weight: 98 kg

DRUGS (37)
  1. MAINTATE [Concomitant]
     Indication: HYPERTENSION
     Dosage: 2.5 MG, UNK
     Route: 048
     Dates: start: 20090107
  2. NOVORAPID [Concomitant]
     Dosage: 46 IU, UNK
     Route: 058
  3. ZETIA [Concomitant]
     Dosage: 10 MG, UNK
     Route: 048
     Dates: start: 20080806
  4. ARTIST [Concomitant]
     Indication: HYPERTENSION
     Dosage: UNK
     Route: 048
     Dates: start: 20100611
  5. VALSARTAN [Suspect]
     Dosage: 80 MG PER DAY
     Route: 048
     Dates: start: 20081001, end: 20081028
  6. LANTUS [Suspect]
     Dosage: 32 IU DAILY
     Route: 058
     Dates: start: 20090304, end: 20090616
  7. DIART [Concomitant]
     Dosage: 30 MG, UNK
     Route: 048
  8. BENECID [Concomitant]
     Dosage: 500 MG, UNK
     Route: 048
     Dates: start: 20080806, end: 20091013
  9. LIPITOR [Concomitant]
     Dosage: 20 MG, UNK
     Route: 048
     Dates: start: 20080806
  10. ZYLORIC [Concomitant]
     Dosage: 0.5 DF, UNK
     Route: 048
  11. ALLEGRA [Concomitant]
  12. VALSARTAN [Suspect]
     Dosage: 160 MG PER DAY
     Route: 048
     Dates: start: 20081126, end: 20100801
  13. LANTUS [Suspect]
     Dosage: 22 IU DAILY
     Route: 058
     Dates: start: 20090909
  14. LEVEMIR [Concomitant]
     Dosage: 32 IU, UNK
     Route: 058
     Dates: end: 20090303
  15. LIPITOR [Concomitant]
     Dosage: 5 MG, UNK
     Route: 048
  16. LASIX [Concomitant]
     Dosage: 2 DF IN THE MORNING AND AT 2 DF IN THE NOON DAILY
     Dates: start: 20091202
  17. ATELEC [Concomitant]
     Dosage: UNK
     Dates: start: 20100303
  18. VALSARTAN [Suspect]
     Dosage: 120 MG PER DAY
     Route: 048
     Dates: start: 20081029
  19. BLOPRESS [Concomitant]
     Indication: HYPERTENSION
     Dosage: 12 MG, UNK
     Route: 048
     Dates: start: 20080806, end: 20080930
  20. NOVORAPID [Concomitant]
     Dosage: 36 IU, UNK
     Route: 058
  21. NOVORAPID [Concomitant]
     Dosage: 40 IU, UNK
     Route: 058
  22. ALLELOCK [Concomitant]
     Dosage: 5 MG, UNK
     Route: 048
     Dates: start: 20090304, end: 20090501
  23. LANTUS [Suspect]
     Dosage: 24 IU DAILY
     Route: 058
     Dates: start: 20090617, end: 20090908
  24. DIART [Concomitant]
     Indication: HYPERTENSION
     Dosage: 30 MG, UNK
     Route: 048
     Dates: start: 20080806
  25. DIART [Concomitant]
     Dosage: 60 MG, UNK
     Route: 048
  26. NATRIX [Concomitant]
     Indication: HYPERTENSION
     Dosage: 1 MG, UNK
     Route: 048
     Dates: start: 20090204, end: 20090812
  27. PANALDINE [Concomitant]
     Dosage: 200 MG, UNK
     Route: 048
     Dates: start: 20080806
  28. LEVEMIR [Concomitant]
     Dosage: 26 IU, UNK
     Route: 058
  29. HERBESSER [Concomitant]
     Dosage: 30 MG, UNK
     Route: 048
  30. NOVORAPID [Concomitant]
     Dosage: 30 IU, UNK
     Route: 058
     Dates: start: 20080806
  31. LEVEMIR [Concomitant]
     Dosage: 22 IU, UNK
     Route: 058
     Dates: start: 20080806
  32. NORVASC [Concomitant]
     Indication: HYPERTENSION
     Dosage: 10 MG, UNK
     Route: 048
     Dates: start: 20080806
  33. DOXAZOSIN MESYLATE [Concomitant]
     Indication: HYPERTENSION
     Dosage: 4 MG, UNK
     Route: 048
     Dates: start: 20080806
  34. ADALAT CC [Concomitant]
     Indication: HYPERTENSION
     Dosage: 20 MG, UNK
     Route: 048
     Dates: start: 20090304, end: 20090401
  35. ASPIRIN [Concomitant]
     Dosage: 100 MG, UNK
     Route: 048
     Dates: start: 20080806
  36. GASTER D [Concomitant]
     Dosage: 20 MG, UNK
     Route: 048
     Dates: start: 20080806
  37. FRANDOL [Concomitant]
     Route: 062

REACTIONS (14)
  - DIABETIC NEPHROPATHY [None]
  - BLOOD PRESSURE SYSTOLIC INCREASED [None]
  - GLYCOSYLATED HAEMOGLOBIN INCREASED [None]
  - URTICARIA [None]
  - BLOOD PRESSURE DIASTOLIC DECREASED [None]
  - NEPHROGENIC ANAEMIA [None]
  - SWELLING [None]
  - OEDEMA PERIPHERAL [None]
  - COUGH [None]
  - ANGIOMYOLIPOMA [None]
  - NEPHRITIC SYNDROME [None]
  - WEIGHT INCREASED [None]
  - NEPHROTIC SYNDROME [None]
  - HYPOAESTHESIA [None]
